FAERS Safety Report 16963098 (Version 2)
Quarter: 2020Q3

REPORT INFORMATION
  Report Type: Report from Study
  Country: DK (occurrence: DK)
  Receive Date: 20191025
  Receipt Date: 20191105
  Transmission Date: 20201104
  Serious: Yes (Death)
  Sender: FDA-Public Use
  Company Number: DK-PFIZER INC-2019455825

PATIENT
  Age: 72 Year
  Sex: Female
  Weight: 55.1 kg

DRUGS (13)
  1. TALAZOPARIB. [Suspect]
     Active Substance: TALAZOPARIB
     Indication: NON-SMALL CELL LUNG CANCER
     Dosage: 0.75 MG, 1X/DAY
     Route: 048
     Dates: start: 20190806, end: 20190910
  2. ORAMORPH SR SUSTAINED RELEASE [Concomitant]
     Active Substance: MORPHINE SULFATE
     Indication: COUGH
     Dosage: 2?5 GTT AS NEEDED
     Route: 048
     Dates: start: 20190826
  3. LEVOTHYROXIN [Concomitant]
     Active Substance: LEVOTHYROXINE
     Indication: HYPOTHYROIDISM
     Dosage: 100 MG, 1X/DAY
     Route: 048
     Dates: start: 20140213
  4. ESTRADIOL. [Concomitant]
     Active Substance: ESTRADIOL
     Indication: SUPPLEMENTATION THERAPY
     Dosage: 10 MG, 2X/WEEK
     Route: 067
     Dates: start: 20140811
  5. SIMVASTATIN. [Concomitant]
     Active Substance: SIMVASTATIN
     Indication: BLOOD CHOLESTEROL
     Dosage: 40 MG, 1X/DAY
     Route: 048
     Dates: start: 20180425
  6. LOSARTAN. [Concomitant]
     Active Substance: LOSARTAN
     Indication: HYPERTENSION
     Dosage: 50 MG, 1X/DAY
     Route: 048
     Dates: start: 20140213
  7. ACETYLSALICYLIC ACID [Concomitant]
     Active Substance: ASPIRIN
     Indication: BLOOD DISORDER
     Dosage: 75 MG, 1X/DAY
     Route: 048
     Dates: start: 20170301
  8. AVELUMAB [Suspect]
     Active Substance: AVELUMAB
     Indication: NON-SMALL CELL LUNG CANCER
     Dosage: 800 MG, EVERY 2 WEEKS
     Route: 041
     Dates: start: 20190806, end: 20190910
  9. AMOXICILLIN CLAVULANIC ACID [Concomitant]
     Active Substance: AMOXICILLIN\CLAVULANIC ACID
     Indication: C-REACTIVE PROTEIN INCREASED
     Dosage: [AMOXICILLIN TRIHYDRATE 500MG]/[CLAVULANATE POTASSIUM 125MG], 3X/DAY
     Route: 048
     Dates: start: 20190902
  10. PREDNISOLON [PREDNISOLONE] [Concomitant]
     Active Substance: PREDNISOLONE
     Indication: NAUSEA
     Dosage: 25 MG, 1X/DAY
     Route: 048
     Dates: start: 20190906
  11. CODEIN [Concomitant]
     Active Substance: CODEINE
     Indication: COUGH
     Dosage: 25 MG, AS NEEDED
     Route: 048
     Dates: start: 20190726
  12. ESCITALOPRAM [Concomitant]
     Active Substance: ESCITALOPRAM OXALATE
     Indication: ANXIETY
     Dosage: 10 MG, 1X/DAY
     Route: 048
     Dates: start: 20181127
  13. CALCIUM VITAMIN D [Concomitant]
     Active Substance: CALCIUM\VITAMIN D
     Indication: SUPPLEMENTATION THERAPY
     Dosage: [CALCIUM 400MG]/[COLECALCIFEROL 19MG], 2X/DAY
     Route: 048
     Dates: start: 20181229

REACTIONS (1)
  - Neoplasm progression [Fatal]

NARRATIVE: CASE EVENT DATE: 20190920
